FAERS Safety Report 8448523-2 (Version None)
Quarter: 2012Q2

REPORT INFORMATION
  Report Type: 
  Country: None (occurrence: None)
  Receive Date: 20120619
  Receipt Date: 20120614
  Transmission Date: 20120825
  Serious: No
  Sender: FDA-Public Use
  Company Number: US-PFIZER INC-2012144817

PATIENT
  Sex: Male

DRUGS (1)
  1. CELEBREX [Suspect]
     Dosage: 200 MG, UNK
     Route: 048

REACTIONS (4)
  - FLUSHING [None]
  - PRURITUS [None]
  - CHEST DISCOMFORT [None]
  - AURICULAR SWELLING [None]
